FAERS Safety Report 12851841 (Version 1)
Quarter: 2016Q4

REPORT INFORMATION
  Report Type: Spontaneous
  Country: US (occurrence: US)
  Receive Date: 20161014
  Receipt Date: 20161014
  Transmission Date: 20170207
  Serious: Yes (Disabling)
  Sender: FDA-Public Use
  Company Number: None

PATIENT
  Age: 46 Year
  Sex: Female
  Weight: 144 kg

DRUGS (2)
  1. HYOSCYAMINE. [Suspect]
     Active Substance: HYOSCYAMINE
     Indication: IRRITABLE BOWEL SYNDROME
     Dosage: ?          QUANTITY:1 TABLET(S);?
     Route: 060
     Dates: start: 20160918, end: 20161001
  2. FLURICASONE NASAL SPRAY [Concomitant]

REACTIONS (1)
  - Vision blurred [None]

NARRATIVE: CASE EVENT DATE: 20160922
